FAERS Safety Report 5649792-4 (Version None)
Quarter: 2008Q1

REPORT INFORMATION
  Report Type: 
  Country: None (occurrence: None)
  Receive Date: 20080304
  Receipt Date: 20080221
  Transmission Date: 20080703
  Serious: Yes (Other)
  Sender: FDA-Public Use
  Company Number: US-PFIZER INC-2008017742

PATIENT
  Sex: Male

DRUGS (2)
  1. CHANTIX [Suspect]
  2. LEXAPRO [Concomitant]

REACTIONS (2)
  - AGITATION [None]
  - HOSTILITY [None]
